FAERS Safety Report 15077626 (Version 1)
Quarter: 2018Q2

REPORT INFORMATION
  Report Type: Report from Study
  Country: US (occurrence: US)
  Receive Date: 20180627
  Receipt Date: 20180627
  Transmission Date: 20180711
  Serious: Yes (Disabling, Other)
  Sender: FDA-Public Use
  Company Number: US-REGENERON PHARMACEUTICALS, INC.-2018-25702

PATIENT

DRUGS (1)
  1. EYLEA [Suspect]
     Active Substance: AFLIBERCEPT
     Indication: DIABETIC RETINAL OEDEMA
     Dosage: UNK, EVERY 4-6 WEEKS

REACTIONS (5)
  - Injection site discomfort [Unknown]
  - Eye pruritus [Unknown]
  - Blindness transient [Recovered/Resolved]
  - Fear of injection [Unknown]
  - Injection site pain [Unknown]
